FAERS Safety Report 5136336-9 (Version None)
Quarter: 2006Q4

REPORT INFORMATION
  Report Type: 
  Country: None (occurrence: None)
  Receive Date: 20061027
  Receipt Date: 20061023
  Transmission Date: 20070319
  Serious: Yes (Death, Other)
  Sender: FDA-Public Use
  Company Number: 2006AC01942

PATIENT
  Age: 51 Year
  Sex: Female

DRUGS (2)
  1. TAMOXIFEN CITRATE [Suspect]
     Indication: VASCULAR PROCEDURE COMPLICATION
     Dates: start: 20050501
  2. PREDNISONE TAB [Concomitant]
     Indication: VASCULAR PROCEDURE COMPLICATION
     Dates: start: 20050501

REACTIONS (4)
  - ANAEMIA [None]
  - BACTERIAL SEPSIS [None]
  - CALCIPHYLAXIS [None]
  - HYPOALBUMINAEMIA [None]
